FAERS Safety Report 6210014-7 (Version None)
Quarter: 2009Q2

REPORT INFORMATION
  Report Type: 
  Country: None (occurrence: None)
  Receive Date: 20090527
  Receipt Date: 20090519
  Transmission Date: 20091009
  Serious: Yes (Death, Hospitalization)
  Sender: FDA-Public Use
  Company Number: 2003JP005163

PATIENT
  Age: 54 Year
  Sex: Female

DRUGS (1)
  1. PROGRAF [Suspect]
     Indication: RENAL TRANSPLANT
     Dates: start: 19990901

REACTIONS (8)
  - HERPES VIRUS INFECTION [None]
  - MULTI-ORGAN FAILURE [None]
  - RENAL ARTERY STENOSIS [None]
  - SKIN EXFOLIATION [None]
  - SKIN GRAFT [None]
  - STAPHYLOCOCCAL INFECTION [None]
  - SUBCUTANEOUS ABSCESS [None]
  - TRANSPLANT REJECTION [None]
